FAERS Safety Report 20858381 (Version 1)
Quarter: 2022Q2

REPORT INFORMATION
  Report Type: Spontaneous
  Country: CH (occurrence: CH)
  Receive Date: 20220521
  Receipt Date: 20220521
  Transmission Date: 20220721
  Serious: Yes (Hospitalization, Other)
  Sender: FDA-Public Use
  Company Number: None

PATIENT
  Age: 41 Year
  Sex: Female

DRUGS (16)
  1. FENTANYL TRANSDERMAL SYSTEM [Suspect]
     Active Substance: FENTANYL
     Dosage: 200 MCG/H
     Route: 062
  2. NAPROXEN [Suspect]
     Active Substance: NAPROXEN
     Dosage: 1 CP ON THE 1ST DAY OF MENSTRUATION, 1/2 CP FROM THE 2ND DAY; CYCLICAL, 550MG
     Route: 048
  3. DIENOGEST [Suspect]
     Active Substance: DIENOGEST
     Dosage: 2 MILLIGRAM DAILY;
     Route: 048
  4. LINACLOTIDE [Suspect]
     Active Substance: LINACLOTIDE
     Dosage: 1160 MICROGRAM DAILY;
     Route: 048
  5. KLEAN-PREP [Suspect]
     Active Substance: ELECTROLYTES NOS\POLYETHYLENE GLYCOL 3350
     Dosage: 1 DOSAGE FORMS DAILY;
     Route: 048
  6. PRUCALOPRIDE SUCCINATE [Suspect]
     Active Substance: PRUCALOPRIDE SUCCINATE
     Dosage: 1 MILLIGRAM DAILY;
     Route: 048
  7. RELISTOR [Suspect]
     Active Substance: METHYLNALTREXONE BROMIDE
     Dosage: 12 MILLIGRAM DAILY;
     Route: 058
  8. ELECTROLYTES NOS\POLYETHYLENE GLYCOL 4000 [Suspect]
     Active Substance: ELECTROLYTES NOS\POLYETHYLENE GLYCOL 4000
     Dosage: 1 SACHET MAX 1X/J  ; AS NECESSARY
     Route: 065
  9. FREKA-CLYSS [Concomitant]
     Dosage: AS NECESSARY
     Route: 065
  10. KETAMINE [Concomitant]
     Active Substance: KETAMINE
     Route: 048
  11. ACETAMINOPHEN [Concomitant]
     Active Substance: ACETAMINOPHEN
     Dosage: AS NECESSARY
     Route: 065
  12. VALPROATE [Concomitant]
     Active Substance: VALPROIC ACID
     Route: 065
  13. TRAZODONE [Concomitant]
     Active Substance: TRAZODONE HYDROCHLORIDE
     Route: 065
  14. ZOPICLONE [Concomitant]
     Active Substance: ZOPICLONE
     Route: 065
  15. MELATONIN [Concomitant]
     Active Substance: MELATONIN
     Route: 065
  16. CHOLECALCIFEROL [Concomitant]
     Active Substance: CHOLECALCIFEROL
     Route: 065

REACTIONS (3)
  - Constipation [Not Recovered/Not Resolved]
  - Abdominal pain [Not Recovered/Not Resolved]
  - Volvulus [Recovered/Resolved]

NARRATIVE: CASE EVENT DATE: 20200101
